FAERS Safety Report 4863617-6 (Version None)
Quarter: 2005Q4

REPORT INFORMATION
  Report Type: 
  Country: None (occurrence: None)
  Receive Date: 20051222
  Receipt Date: 20050901
  Transmission Date: 20060501
  Serious: No
  Sender: FDA-Public Use
  Company Number: US-GLAXOSMITHKLINE-A0572728A

PATIENT
  Age: 75 Year
  Sex: Female

DRUGS (8)
  1. FLOVENT [Suspect]
     Indication: ASTHMA
     Dosage: 2PUFF TWICE PER DAY
     Route: 055
     Dates: start: 20050801
  2. THEOPHYLLINE [Concomitant]
  3. COMBIVENT [Concomitant]
  4. CALAN [Concomitant]
  5. MAXZIDE [Concomitant]
  6. K-DUR 10 [Concomitant]
  7. PEPCID [Concomitant]
  8. MAGNESIUM + CALCIUM [Concomitant]

REACTIONS (2)
  - DYSPNOEA EXACERBATED [None]
  - MIDDLE INSOMNIA [None]
